FAERS Safety Report 7644128-1 (Version None)
Quarter: 2011Q3

REPORT INFORMATION
  Report Type: 
  Country: None (occurrence: None)
  Receive Date: 20110729
  Receipt Date: 20110722
  Transmission Date: 20111222
  Serious: Yes (Other)
  Sender: FDA-Public Use
  Company Number: GB-B.I. PHARMACEUTICALS,INC./RIDGEFIELD-2011-UK-00789UK

PATIENT
  Sex: Female
  Weight: 80.3 kg

DRUGS (12)
  1. PRADAXA [Suspect]
     Indication: THROMBOSIS PROPHYLAXIS
     Dosage: 220 MG
     Route: 048
     Dates: start: 20110524, end: 20110613
  2. ACETAMINOPHEN [Concomitant]
     Indication: ANALGESIC THERAPY
     Dosage: 500 MG
     Route: 048
  3. LANSOPRAZOLE [Concomitant]
     Indication: ABDOMINAL DISCOMFORT
     Dosage: 30 MG
     Route: 048
     Dates: start: 20110520, end: 20110524
  4. OXYCODONE HCL [Concomitant]
     Indication: ANALGESIC THERAPY
     Dosage: 10 MG
     Route: 048
     Dates: start: 20110521, end: 20110521
  5. ZOPICLONE [Concomitant]
     Indication: SEDATION
     Dosage: 7.5 MG
     Route: 048
     Dates: start: 20110520, end: 20110523
  6. AMLODIPINE BESYLATE [Concomitant]
     Indication: HYPERTENSION
     Dosage: 5 MG
     Route: 048
  7. ARNICA [Concomitant]
     Dosage: 200C PRN
     Route: 048
  8. ACETAMINOPHEN [Concomitant]
     Dosage: 4 G
     Route: 048
     Dates: start: 20110519
  9. ARNICA [Concomitant]
     Indication: INCREASED TENDENCY TO BRUISE
     Dosage: 30C PRN
     Route: 048
  10. ENOXAPARIN [Concomitant]
     Indication: THROMBOSIS PROPHYLAXIS
     Dosage: 40 MG
     Route: 058
     Dates: start: 20110519, end: 20110523
  11. CODEINE SULFATE [Concomitant]
     Indication: ANALGESIC THERAPY
     Dosage: 120-240MG PRN
     Route: 048
     Dates: start: 20110519
  12. MULTI-VITAMINS [Concomitant]

REACTIONS (6)
  - COLON CANCER METASTATIC [None]
  - RECTAL HAEMORRHAGE [None]
  - METASTASES TO LIVER [None]
  - DYSPEPSIA [None]
  - METASTASES TO LUNG [None]
  - PULMONARY EMBOLISM [None]
